FAERS Safety Report 5075459-X (Version None)
Quarter: 2006Q3

REPORT INFORMATION
  Report Type: 
  Country: None (occurrence: None)
  Receive Date: 20060809
  Receipt Date: 20060731
  Transmission Date: 20061208
  Serious: Yes (Other)
  Sender: FDA-Public Use
  Company Number: 2006AC01423

PATIENT
  Age: 12 Week
  Sex: Female
  Weight: 5.2 kg

DRUGS (3)
  1. BUPIVACAINE [Suspect]
     Indication: EPIDURAL ANAESTHESIA
     Dosage: TEST DOSE
     Route: 008
  2. BUPIVACAINE [Suspect]
     Route: 008
  3. FENTANYL [Suspect]
     Indication: EPIDURAL ANAESTHESIA
     Route: 008

REACTIONS (2)
  - CATHETER RELATED COMPLICATION [None]
  - HORNER'S SYNDROME [None]
